FAERS Safety Report 17729787 (Version 3)
Quarter: 2020Q2

REPORT INFORMATION
  Report Type: Spontaneous
  Country: ES (occurrence: ES)
  Receive Date: 20200430
  Receipt Date: 20200610
  Transmission Date: 20200714
  Serious: Yes (Hospitalization)
  Sender: FDA-Public Use
  Company Number: ES-PFIZER INC-2020171239

PATIENT
  Age: 53 Year
  Sex: Male

DRUGS (4)
  1. AZITHROMYCIN ANHYDROUS. [Suspect]
     Active Substance: AZITHROMYCIN ANHYDROUS
     Indication: COVID-19 PNEUMONIA
     Dosage: 500 MG, 1X/DAY (ROUTE OF ADMINISTRATION CONFIRMED BY NASOGASTRIC TUBE)
     Route: 050
     Dates: start: 20200325, end: 20200329
  2. PROPOFOL. [Suspect]
     Active Substance: PROPOFOL
     Indication: SEDATION
     Dosage: 6.6 MG/KG EVERY HOUR
     Route: 042
     Dates: start: 20200328, end: 20200328
  3. DEXAMETHASONE. [Concomitant]
     Active Substance: DEXAMETHASONE
     Dosage: 4 MG, 1X/DAY
     Route: 042
     Dates: start: 20200326, end: 20200327
  4. DOLQUINE [Suspect]
     Active Substance: HYDROXYCHLOROQUINE SULFATE
     Indication: COVID-19 PNEUMONIA
     Dosage: 400 MG, 1X/DAY (ROUTE OF ADMINISTRATION CONFIRMED BY NASOGASTRIC TUBE)
     Route: 050
     Dates: start: 20200325, end: 20200329

REACTIONS (4)
  - Propofol infusion syndrome [Recovering/Resolving]
  - Off label use [Unknown]
  - Product use issue [Unknown]
  - Product use in unapproved indication [Unknown]

NARRATIVE: CASE EVENT DATE: 20200325
